FAERS Safety Report 20770683 (Version 1)
Quarter: 2022Q2

REPORT INFORMATION
  Report Type: Spontaneous
  Country: US (occurrence: US)
  Receive Date: 20220429
  Receipt Date: 20220429
  Transmission Date: 20220721
  Serious: Yes (Hospitalization)
  Sender: FDA-Public Use
  Company Number: US-R-PHARM US LLC-2022RPM00004

PATIENT
  Age: 72 Year
  Sex: Female
  Weight: 55.782 kg

DRUGS (5)
  1. IXEMPRA [Suspect]
     Active Substance: IXABEPILONE
     Indication: Endometrial cancer
     Dosage: 26 MG, 1X/WEEK
     Route: 042
     Dates: start: 20211111, end: 20220401
  2. MAGNESIUM [Concomitant]
     Active Substance: MAGNESIUM
  3. VITAMIN B COMPLEX [Concomitant]
     Active Substance: CYANOCOBALAMIN\DEXPANTHENOL\NIACINAMIDE\PYRIDOXINE HYDROCHLORIDE\RIBOFLAVIN 5^-PHOSPHATE SODIUM\THIA
  4. PEPCID [Concomitant]
     Active Substance: FAMOTIDINE
  5. VITAMIN D3 [Concomitant]
     Active Substance: CHOLECALCIFEROL

REACTIONS (6)
  - Gastrointestinal infection [Unknown]
  - Hypotension [Recovered/Resolved]
  - Haematochezia [Recovered/Resolved]
  - Colitis [Unknown]
  - Fall [Recovered/Resolved]
  - Dizziness [Recovered/Resolved]

NARRATIVE: CASE EVENT DATE: 20220401
